FAERS Safety Report 4367516-8 (Version None)
Quarter: 2004Q2

REPORT INFORMATION
  Report Type: 
  Country: None (occurrence: None)
  Receive Date: 20040601
  Receipt Date: 20030924
  Transmission Date: 20050107
  Serious: Yes (Other)
  Sender: FDA-Public Use
  Company Number: BE-ROCHE-347588

PATIENT
  Age: 47 Year
  Sex: Male

DRUGS (7)
  1. MYCOPHENOLATE MOFETIL [Suspect]
     Route: 065
  2. MYCOPHENOLATE MOFETIL [Suspect]
     Route: 065
  3. EPREX [Suspect]
     Indication: ANAEMIA
     Route: 065
  4. METHYLPREDNISOLONE [Concomitant]
  5. CYCLOSPORINE [Concomitant]
     Dosage: AND ADAPTED ACCORDING TO SERUM LEVELS BETWEEN 200 AND 250 NG/ML.
  6. ATG [Concomitant]
  7. IRON SUPPLEMENT [Concomitant]
     Indication: ANAEMIA

REACTIONS (5)
  - APLASIA PURE RED CELL [None]
  - COMPLICATIONS OF TRANSPLANTED KIDNEY [None]
  - HYPOAESTHESIA [None]
  - PELVIC HAEMATOMA [None]
  - TRANSPLANT REJECTION [None]
